FAERS Safety Report 25392426 (Version 1)
Quarter: 2025Q2

REPORT INFORMATION
  Report Type: Spontaneous
  Country: US (occurrence: US)
  Receive Date: 20250603
  Receipt Date: 20250603
  Transmission Date: 20250716
  Serious: Yes (Hospitalization)
  Sender: SANOFI AVENTIS
  Company Number: US-SA-2025SA156462

PATIENT
  Age: 64 Year
  Sex: Male
  Weight: 100.14 kg

DRUGS (6)
  1. ELOXATIN [Suspect]
     Active Substance: OXALIPLATIN
     Dates: start: 20250320, end: 20250417
  2. BINIMETINIB [Suspect]
     Active Substance: BINIMETINIB
     Route: 048
     Dates: start: 20250320, end: 20250504
  3. FLUOROURACIL [Suspect]
     Active Substance: FLUOROURACIL
     Dates: start: 20250320, end: 20250419
  4. LEUCOVORIN CALCIUM [Suspect]
     Active Substance: LEUCOVORIN CALCIUM
     Dates: start: 20250320, end: 20250417
  5. CEFEPIME [Concomitant]
     Active Substance: CEFEPIME HYDROCHLORIDE
  6. DOXYCYCLINE [Concomitant]
     Active Substance: DOXYCYCLINE

REACTIONS (1)
  - Muscular weakness [Not Recovered/Not Resolved]

NARRATIVE: CASE EVENT DATE: 20250504
